FAERS Safety Report 10648394 (Version 12)
Quarter: 2016Q3

REPORT INFORMATION
  Report Type: Report from Study
  Country: BR (occurrence: BR)
  Receive Date: 20141212
  Receipt Date: 20160729
  Transmission Date: 20161109
  Serious: Yes (Other)
  Sender: FDA-Public Use
  Company Number: PHHY2014BR017744

PATIENT
  Age: 5 Year
  Sex: Female
  Weight: 27.5 kg

DRUGS (7)
  1. EVEROLIMUS [Suspect]
     Active Substance: EVEROLIMUS
     Dosage: 7.5 MG, QD
     Route: 048
     Dates: start: 201509
  2. OXCARBAZEPINA [Concomitant]
     Active Substance: OXCARBAZEPINE
     Dosage: 6 ML/8/Q8H
     Route: 048
  3. OXCARBAZEPINA [Concomitant]
     Active Substance: OXCARBAZEPINE
     Dosage: 4 ML/8, Q8H
     Route: 048
  4. EVEROLIMUS [Suspect]
     Active Substance: EVEROLIMUS
     Indication: TUBEROUS SCLEROSIS
     Dosage: 5 MG, QD
     Route: 048
     Dates: start: 20110608, end: 201509
  5. OXCARBAZEPINA [Concomitant]
     Active Substance: OXCARBAZEPINE
     Indication: PRODUCT USED FOR UNKNOWN INDICATION
     Dosage: 7.5 ML, QD
     Route: 048
     Dates: start: 20110216
  6. VERTIX//BETAHISTINE HYDROCHLORIDE [Concomitant]
     Indication: DIZZINESS
     Route: 048
  7. CLOBAZAM [Concomitant]
     Active Substance: CLOBAZAM
     Indication: ANXIETY
     Dosage: 5 MG, UNK
     Route: 048
     Dates: start: 201509

REACTIONS (34)
  - Oropharyngeal pain [Recovered/Resolved]
  - Conjunctivitis bacterial [Not Recovered/Not Resolved]
  - Tonsillitis [Recovered/Resolved]
  - Febrile convulsion [Recovered/Resolved]
  - Generalised tonic-clonic seizure [Recovered/Resolved]
  - Oropharyngeal pain [Recovered/Resolved]
  - Blood triglycerides increased [Not Recovered/Not Resolved]
  - Oropharyngeal pain [Recovered/Resolved]
  - Hordeolum [Recovered/Resolved]
  - Nasal disorder [Recovered/Resolved]
  - Pyrexia [Recovered/Resolved]
  - Mucosal inflammation [Unknown]
  - Hyperaemia [Recovered/Resolved]
  - Aphthous ulcer [Recovered/Resolved]
  - Pyrexia [Recovered/Resolved]
  - Tonsillitis [Not Recovered/Not Resolved]
  - Pyrexia [Recovered/Resolved]
  - Pyrexia [Recovered/Resolved]
  - Varicella [Recovered/Resolved]
  - Seizure [Recovered/Resolved]
  - Productive cough [Recovered/Resolved]
  - Hypophagia [Recovered/Resolved]
  - Mouth ulceration [Recovered/Resolved]
  - Pyrexia [Recovered/Resolved]
  - Aphthous ulcer [Unknown]
  - Hypercholesterolaemia [Not Recovered/Not Resolved]
  - Seizure [Recovered/Resolved]
  - Odynophagia [Recovered/Resolved]
  - Pyrexia [Recovered/Resolved]
  - Blood albumin decreased [Not Recovered/Not Resolved]
  - Diarrhoea [Not Recovered/Not Resolved]
  - Febrile convulsion [Recovered/Resolved]
  - Hyperaemia [Recovered/Resolved]
  - Cough [Not Recovered/Not Resolved]

NARRATIVE: CASE EVENT DATE: 201312
